FAERS Safety Report 8060513-0 (Version None)
Quarter: 2012Q1

REPORT INFORMATION
  Report Type: 
  Country: None (occurrence: None)
  Receive Date: 20120120
  Receipt Date: 20120111
  Transmission Date: 20120608
  Serious: Yes (Hospitalization)
  Sender: FDA-Public Use
  Company Number: FR-BRISTOL-MYERS SQUIBB COMPANY-16350795

PATIENT
  Age: 89 Year
  Sex: Male

DRUGS (7)
  1. LASIX [Concomitant]
     Route: 048
  2. OFLOXACIN [Concomitant]
     Route: 048
     Dates: start: 20110301, end: 20110424
  3. SYMBICORT [Concomitant]
  4. BRICANYL [Concomitant]
     Dates: start: 20110404, end: 20110412
  5. COLCHICINE [Concomitant]
     Indication: GOUT
     Route: 048
     Dates: start: 20110401
  6. COUMADIN [Suspect]
     Route: 048
     Dates: end: 20110419
  7. AUGMENTIN '125' [Concomitant]

REACTIONS (5)
  - RENAL FAILURE ACUTE [None]
  - HAEMATURIA [None]
  - LUNG INFECTION [None]
  - OVERDOSE [None]
  - CARDIOPULMONARY FAILURE [None]
